FAERS Safety Report 5420295-5 (Version None)
Quarter: 2007Q3

REPORT INFORMATION
  Report Type: 
  Country: None (occurrence: None)
  Receive Date: 20070820
  Receipt Date: 20070815
  Transmission Date: 20080115
  Serious: Yes (Hospitalization)
  Sender: FDA-Public Use
  Company Number: US-MERCK-0707USA02221

PATIENT
  Age: 19 Year
  Sex: Female
  Weight: 140 kg

DRUGS (2)
  1. SINGULAIR [Suspect]
     Indication: ASTHMA
     Route: 048
     Dates: start: 20030101
  2. YAZ [Concomitant]
     Route: 065
     Dates: end: 20070701

REACTIONS (2)
  - PYREXIA [None]
  - URINARY TRACT INFECTION [None]
